FAERS Safety Report 6268572-2 (Version None)
Quarter: 2009Q3

REPORT INFORMATION
  Report Type: 
  Country: None (occurrence: None)
  Receive Date: 20090713
  Receipt Date: 20090713
  Transmission Date: 20100115
  Serious: Yes (Life-Threatening, Disabling, Other)
  Sender: FDA-Public Use
  Company Number: None

PATIENT
  Age: 56 Year
  Sex: Female
  Weight: 50.3493 kg

DRUGS (3)
  1. STRATTERA [Suspect]
     Dosage: 25 MG ONCE A DAY PO
     Route: 048
     Dates: start: 20090314, end: 20090402
  2. BIOIDENTICAL HRT [Concomitant]
  3. RESTASIS [Concomitant]

REACTIONS (4)
  - FALL [None]
  - GRAND MAL CONVULSION [None]
  - LOSS OF CONSCIOUSNESS [None]
  - NO THERAPEUTIC RESPONSE [None]
